FAERS Safety Report 7018903-0 (Version None)
Quarter: 2010Q3

REPORT INFORMATION
  Report Type: 
  Country: None (occurrence: None)
  Receive Date: 20100928
  Receipt Date: 20100922
  Transmission Date: 20110219
  Serious: Yes (Death, Hospitalization, Other)
  Sender: FDA-Public Use
  Company Number: FR-BAYER-201040285GPV

PATIENT
  Age: 85 Year
  Sex: Female
  Weight: 65 kg

DRUGS (7)
  1. CIFLOX [Suspect]
     Indication: URINARY TRACT INFECTION
     Route: 048
     Dates: start: 20090112, end: 20090115
  2. PREVISCAN [Interacting]
     Indication: ATRIAL FIBRILLATION
     Dosage: LONG TERM TREATMENT
     Route: 048
     Dates: end: 20090115
  3. PERINDOPRIL ERBUMINE [Concomitant]
     Dosage: LONG TERM TREATMENT
     Route: 048
  4. FUROSEMIDE [Concomitant]
     Dosage: LONG TERM TREATMENT
     Route: 048
  5. HEMIGOXINE NATIVELLE [Concomitant]
     Dosage: LONG TERM TREATMENT
     Route: 048
  6. KALEORID [Concomitant]
     Dosage: LONG TERM TREATMENT
     Route: 048
  7. CARDENSIEL [Concomitant]
     Dosage: LONG TERM TREATMENT
     Route: 048

REACTIONS (8)
  - APHASIA [None]
  - CARDIO-RESPIRATORY ARREST [None]
  - HAEMORRHAGE INTRACRANIAL [None]
  - HEADACHE [None]
  - HEMIPLEGIA [None]
  - RENAL FAILURE [None]
  - STATUS EPILEPTICUS [None]
  - SUBDURAL HAEMATOMA [None]
